FAERS Safety Report 4110140 (Version 2)
Quarter: 2020Q3

REPORT INFORMATION
  Report Type: Report from Study
  Country: US (occurrence: US)
  Receive Date: 20040312
  Receipt Date: 20041027
  Transmission Date: 20201105
  Serious: Yes (Other)
  Sender: FDA-Public Use
  Company Number: US-JNJFOC-20040300879

PATIENT
  Age: 60 Year
  Sex: Female
  Weight: 58.2 kg

DRUGS (15)
  1. VICODIN ES [Concomitant]
     Active Substance: ACETAMINOPHEN\HYDROCODONE BITARTRATE
     Route: 049
  2. POLYETHYLENE GLYCOL 3350. [Concomitant]
     Active Substance: POLYETHYLENE GLYCOL 3350
     Indication: CONSTIPATION
     Route: 049
  3. ESTROGENS CONJ/MEDROXYPRO [Concomitant]
     Route: 049
  4. CISAPRIDE [Suspect]
     Active Substance: CISAPRIDE
     Indication: GASTROOESOPHAGEAL REFLUX DISEASE
     Route: 049
     Dates: start: 20010208, end: 20040131
  5. FUROSEMIDE. [Concomitant]
     Active Substance: FUROSEMIDE
     Route: 049
  6. CITALOPRAM HYDROBROMIDE. [Concomitant]
     Active Substance: CITALOPRAM HYDROBROMIDE
     Indication: DEPRESSION
     Route: 049
  7. GABAPENTIN. [Concomitant]
     Active Substance: GABAPENTIN
     Indication: NEUROPATHY PERIPHERAL
     Route: 049
  8. RIZATRIPTAN. [Concomitant]
     Active Substance: RIZATRIPTAN
     Indication: MIGRAINE
     Route: 049
  9. MEDROXYPROGESTERONE ACETATE. [Concomitant]
     Active Substance: MEDROXYPROGESTERONE ACETATE
     Dosage: ONE TABLET DAILY.
     Route: 049
  10. IBUPROFEN. [Concomitant]
     Active Substance: IBUPROFEN
     Indication: NECK PAIN
     Route: 049
  11. TRIMETHOBENZAMIDE HYDROCHLORIDE. [Concomitant]
     Active Substance: TRIMETHOBENZAMIDE HYDROCHLORIDE
     Indication: NAUSEA
     Route: 054
  12. CISAPRIDE [Suspect]
     Active Substance: CISAPRIDE
     Route: 049
     Dates: start: 20010208, end: 20040131
  13. VICODIN ES [Concomitant]
     Active Substance: ACETAMINOPHEN\HYDROCODONE BITARTRATE
     Indication: BACK PAIN
     Dosage: ONE TABLET EVERY SIX HOURS IF NEEDED.
     Route: 049
  14. PREVACID [Concomitant]
     Active Substance: LANSOPRAZOLE
     Route: 049
  15. PREVACID [Concomitant]
     Active Substance: LANSOPRAZOLE
     Route: 049

REACTIONS (1)
  - Electrocardiogram QT prolonged [Not Recovered/Not Resolved]

NARRATIVE: CASE EVENT DATE: 20040126
